FAERS Safety Report 13929502 (Version 1)
Quarter: 2017Q3

REPORT INFORMATION
  Report Type: Spontaneous
  Country: PE (occurrence: PE)
  Receive Date: 20170901
  Receipt Date: 20170901
  Transmission Date: 20171127
  Serious: Yes (Other)
  Sender: FDA-Public Use
  Company Number: PE-SA-2017SA150457

PATIENT
  Age: 12 Year
  Sex: Female

DRUGS (3)
  1. PARACETAMOL [Concomitant]
     Active Substance: ACETAMINOPHEN
     Indication: ABDOMINAL PAIN
     Dosage: DOSE: CONDITIONAL
     Route: 048
  2. CEREZYME [Suspect]
     Active Substance: IMIGLUCERASE
     Indication: GAUCHER^S DISEASE
     Dosage: DOSE:2400 UNIT(S)
     Route: 041
     Dates: start: 2013
  3. CEREZYME [Suspect]
     Active Substance: IMIGLUCERASE
     Indication: GAUCHER^S DISEASE
     Dosage: DOSE:1200 UNIT(S)
     Route: 041

REACTIONS (8)
  - Haematoma [Not Recovered/Not Resolved]
  - Malaise [Recovered/Resolved]
  - Leukopenia [Not Recovered/Not Resolved]
  - Sneezing [Recovered/Resolved]
  - Petechiae [Not Recovered/Not Resolved]
  - Platelet count decreased [Not Recovered/Not Resolved]
  - Influenza [Recovered/Resolved]
  - Headache [Recovered/Resolved]

NARRATIVE: CASE EVENT DATE: 20170724
